FAERS Safety Report 9838242 (Version 1)
Quarter: 2014Q1

REPORT INFORMATION
  Report Type: Report from Study
  Country: AR (occurrence: AR)
  Receive Date: 20140123
  Receipt Date: 20140123
  Transmission Date: 20141002
  Serious: Yes (Other)
  Sender: FDA-Public Use
  Company Number: PHHY2014AR007597

PATIENT
  Sex: Female

DRUGS (2)
  1. EXELON [Suspect]
     Indication: MEMORY IMPAIRMENT
     Dosage: DAILY
     Route: 048
     Dates: start: 2004
  2. EXELON [Suspect]
     Indication: BALANCE DISORDER

REACTIONS (2)
  - Maculopathy [Recovering/Resolving]
  - Visual acuity reduced [Unknown]
